FAERS Safety Report 15566335 (Version 1)
Quarter: 2018Q4

REPORT INFORMATION
  Report Type: Spontaneous
  Country: US (occurrence: US)
  Receive Date: 20181030
  Receipt Date: 20181030
  Transmission Date: 20190205
  Serious: Yes (Other)
  Sender: FDA-Public Use
  Company Number: None

PATIENT
  Age: 89 Year
  Sex: Male
  Weight: 94.5 kg

DRUGS (11)
  1. ZYTIGA [Suspect]
     Active Substance: ABIRATERONE ACETATE
     Indication: PROSTATE CANCER
     Route: 048
     Dates: start: 20180126
  2. ATENOLOL. [Concomitant]
     Active Substance: ATENOLOL
  3. BICALUTAMIDE. [Concomitant]
     Active Substance: BICALUTAMIDE
  4. PREDNISONE. [Concomitant]
     Active Substance: PREDNISONE
  5. AMLODIPINE [Concomitant]
     Active Substance: AMLODIPINE BESYLATE
  6. LEVOTHYROXINE. [Concomitant]
     Active Substance: LEVOTHYROXINE
  7. COMBIGAN [Concomitant]
     Active Substance: BRIMONIDINE TARTRATE\TIMOLOL MALEATE
  8. LANTUS [Concomitant]
     Active Substance: INSULIN GLARGINE
  9. SIMVASTATIN. [Concomitant]
     Active Substance: SIMVASTATIN
  10. DORZOLAMIDE [Concomitant]
     Active Substance: DORZOLAMIDE
  11. IRBESARTAN. [Concomitant]
     Active Substance: IRBESARTAN

REACTIONS (3)
  - Asthenia [None]
  - Decreased appetite [None]
  - Atrial fibrillation [None]

NARRATIVE: CASE EVENT DATE: 20181030
